FAERS Safety Report 10466080 (Version 1)
Quarter: 2014Q3

REPORT INFORMATION
  Report Type: Spontaneous
  Country: US (occurrence: None)
  Receive Date: 20140919
  Receipt Date: 20140919
  Transmission Date: 20150326
  Serious: Yes (Other)
  Sender: FDA-Public Use
  Company Number: None

PATIENT
  Age: 44 Year
  Sex: Female
  Weight: 53.8 kg

DRUGS (2)
  1. FLEBOGAMMA DIF [Suspect]
     Active Substance: HUMAN IMMUNOGLOBULIN G
     Indication: HYPOGAMMAGLOBULINAEMIA
     Dosage: 35 GRAMS, 21 DAYS, INTRAVENOUS
     Route: 042
     Dates: start: 20140611, end: 20140728
  2. GAMUNEX-C [Concomitant]
     Active Substance: HUMAN IMMUNOGLOBULIN G

REACTIONS (6)
  - Dizziness [None]
  - Nausea [None]
  - Hypotension [None]
  - Headache [None]
  - Heart rate decreased [None]
  - Dyspnoea [None]

NARRATIVE: CASE EVENT DATE: 20140728
